FAERS Safety Report 8890323 (Version 1)
Quarter: 2012Q4

REPORT INFORMATION
  Report Type: 
  Country: US (occurrence: US)
  Receive Date: 20121107
  Receipt Date: 20121107
  Transmission Date: 20130627
  Serious: Yes (Other)
  Sender: FDA-Public Use
  Company Number: US-AMGEN-USASP2012070268

PATIENT
  Age: 48 Year
  Sex: Female
  Weight: 85.91 kg

DRUGS (1)
  1. NPLATE [Suspect]
     Indication: IDIOPATHIC THROMBOCYTOPENIC PURPURA
     Dosage: 9 mug/kg, qwk
     Dates: start: 20120601

REACTIONS (3)
  - Antibody test positive [Unknown]
  - Ovarian cancer [Unknown]
  - Drug ineffective [Unknown]
